FAERS Safety Report 6176934-7 (Version None)
Quarter: 2009Q2

REPORT INFORMATION
  Report Type: 
  Country: None (occurrence: None)
  Receive Date: 20090501
  Receipt Date: 20090423
  Transmission Date: 20091009
  Serious: Yes (Death, Other)
  Sender: FDA-Public Use
  Company Number: DE-AMGEN-UK332307

PATIENT
  Age: 58 Year
  Sex: Male
  Weight: 185 kg

DRUGS (2)
  1. VECTIBIX [Suspect]
     Indication: COLORECTAL CANCER
     Route: 042
     Dates: start: 20090121, end: 20090224
  2. DEXAMETHASONE TAB [Concomitant]
     Route: 042

REACTIONS (7)
  - DEATH [None]
  - DISEASE PROGRESSION [None]
  - PAIN [None]
  - POST PROCEDURAL HAEMORRHAGE [None]
  - RASH [None]
  - THROMBOCYTOPENIA [None]
  - UROGENITAL HAEMORRHAGE [None]
